FAERS Safety Report 12726613 (Version 1)
Quarter: 2016Q3

REPORT INFORMATION
  Report Type: Report from Study
  Country: CN (occurrence: CN)
  Receive Date: 20160908
  Receipt Date: 20160908
  Transmission Date: 20161109
  Serious: Yes (Hospitalization, Other)
  Sender: FDA-Public Use
  Company Number: CN-BAXALTA-2016BLT006305

PATIENT
  Age: 3 Month
  Sex: Male
  Weight: 8.5 kg

DRUGS (10)
  1. KANG SI PING [Suspect]
     Active Substance: ANTIHEMOPHILIC FACTOR HUMAN
     Indication: HAEMOPHILIA
     Dosage: 200 IU, 2X A DAY
     Route: 065
     Dates: start: 20160813
  2. FACTOR VIII [Suspect]
     Active Substance: ANTIHEMOPHILIC FACTOR HUMAN
     Indication: HAEMOPHILIA
     Dosage: 200 IU, UNK
     Route: 065
  3. KANG SI PING [Suspect]
     Active Substance: ANTIHEMOPHILIC FACTOR HUMAN
     Dosage: 200 IU, UNK
     Route: 065
     Dates: start: 20160815
  4. ADVATE [Suspect]
     Active Substance: ANTIHEMOPHILIC FACTOR, HUMAN RECOMBINANT
     Indication: HAEMOPHILIA
     Dosage: 250 IU, 1X A DAY
     Route: 042
     Dates: start: 20160616
  5. KANG SI PING [Suspect]
     Active Substance: ANTIHEMOPHILIC FACTOR HUMAN
     Dosage: 200 IU, UNK
     Route: 065
     Dates: start: 20160814
  6. ADVATE [Suspect]
     Active Substance: ANTIHEMOPHILIC FACTOR, HUMAN RECOMBINANT
     Dosage: 250 IU, UNK
     Route: 042
  7. ADVATE [Suspect]
     Active Substance: ANTIHEMOPHILIC FACTOR, HUMAN RECOMBINANT
     Dosage: 250 IU, UNK
     Route: 042
     Dates: start: 20160727
  8. ADVATE [Suspect]
     Active Substance: ANTIHEMOPHILIC FACTOR, HUMAN RECOMBINANT
     Indication: HAEMORRHAGE
     Dosage: 250 IU, EVERY 2 DY
     Route: 042
  9. ADVATE [Suspect]
     Active Substance: ANTIHEMOPHILIC FACTOR, HUMAN RECOMBINANT
     Dosage: 250 IU, UNK
     Route: 042
     Dates: start: 201606
  10. ADVATE [Suspect]
     Active Substance: ANTIHEMOPHILIC FACTOR, HUMAN RECOMBINANT
     Dosage: 250 IU, UNK
     Route: 042
     Dates: start: 20160812

REACTIONS (7)
  - Haemarthrosis [Unknown]
  - Tongue haemorrhage [Unknown]
  - Traumatic haematoma [Unknown]
  - Factor VIII inhibition [Unknown]
  - Drug effect decreased [Unknown]
  - Anal haemorrhage [Unknown]
  - Faeces hard [Unknown]

NARRATIVE: CASE EVENT DATE: 201606
